FAERS Safety Report 6904263-X (Version None)
Quarter: 2010Q3

REPORT INFORMATION
  Report Type: 
  Country: None (occurrence: None)
  Receive Date: 20100804
  Receipt Date: 20090414
  Transmission Date: 20110219
  Serious: No
  Sender: FDA-Public Use
  Company Number: US-PFIZER INC-2009199268

PATIENT
  Sex: Female
  Weight: 111 kg

DRUGS (4)
  1. LYRICA [Suspect]
     Indication: PAIN IN EXTREMITY
     Dosage: 50 MG, 1X/DAY
     Dates: start: 20090301
  2. FELDENE [Concomitant]
     Dosage: UNK
  3. MAXZIDE [Concomitant]
     Dosage: UNK
  4. METFORMIN [Concomitant]
     Dosage: UNK

REACTIONS (4)
  - EYE SWELLING [None]
  - HEADACHE [None]
  - PAIN IN EXTREMITY [None]
  - VISION BLURRED [None]
